FAERS Safety Report 5725437-X (Version None)
Quarter: 2008Q2

REPORT INFORMATION
  Report Type: 
  Country: None (occurrence: None)
  Receive Date: 20080501
  Receipt Date: 20080424
  Transmission Date: 20081010
  Serious: Yes (Hospitalization)
  Sender: FDA-Public Use
  Company Number: CH-ASTRAZENECA-2008PK00819

PATIENT
  Age: 64 Year
  Sex: Male

DRUGS (6)
  1. NEXIUM [Suspect]
     Route: 048
     Dates: start: 20080401
  2. PLAVIX [Suspect]
     Route: 048
     Dates: start: 20080401, end: 20080401
  3. ASPEGIC INJECT [Suspect]
     Dates: start: 20080401
  4. CO-ACEPRIL [Suspect]
     Dosage: 12.5MG/20MG
  5. URICONORM [Concomitant]
     Route: 048
  6. LIQUAEMIN INJ [Concomitant]

REACTIONS (2)
  - ANGIOEDEMA [None]
  - TYPE I HYPERSENSITIVITY [None]
